FAERS Safety Report 7814534-0 (Version None)
Quarter: 2011Q4

REPORT INFORMATION
  Report Type: 
  Country: None (occurrence: None)
  Receive Date: 20111014
  Receipt Date: 20111004
  Transmission Date: 20120403
  Serious: Yes (Other)
  Sender: FDA-Public Use
  Company Number: US-US-EMD SERONO, INC.-7083464

PATIENT
  Sex: Female

DRUGS (8)
  1. PREDNISONE [Concomitant]
     Indication: RHEUMATOID ARTHRITIS
  2. NAPROXEN [Concomitant]
     Indication: PREMEDICATION
  3. FOLIC ACID [Concomitant]
  4. TRAZODONE HYDROCHLORIDE [Concomitant]
  5. REBIF [Suspect]
     Route: 058
     Dates: end: 20110901
  6. PREDNISONE [Concomitant]
  7. CYMBALTA [Concomitant]
  8. REBIF [Suspect]
     Indication: MULTIPLE SCLEROSIS
     Dates: start: 20110715

REACTIONS (3)
  - DEPRESSION [None]
  - RHEUMATOID ARTHRITIS [None]
  - TRIGEMINAL NEURALGIA [None]
